FAERS Safety Report 8277970-7 (Version None)
Quarter: 2012Q2

REPORT INFORMATION
  Report Type: 
  Country: None (occurrence: None)
  Receive Date: 20120412
  Receipt Date: 20120409
  Transmission Date: 20120825
  Serious: Yes (Hospitalization)
  Sender: FDA-Public Use
  Company Number: JP-B.I. PHARMACEUTICALS,INC./RIDGEFIELD-2012-BP-06534NB

PATIENT
  Age: 72 Year
  Sex: Male

DRUGS (6)
  1. SPIRIVA [Suspect]
     Dosage: 5 MCG
     Route: 055
     Dates: start: 20101208, end: 20110414
  2. VALSARTAN  AND HYDROCHLOROTHIAZIDE [Concomitant]
     Route: 065
     Dates: start: 20111017
  3. ADVAIR DISKUS 100/50 [Suspect]
     Dosage: 500 MCG
     Dates: start: 20120301
  4. PRORENAL [Concomitant]
     Dosage: 15 MCG
     Route: 048
     Dates: start: 20111017
  5. URIEF [Concomitant]
     Dosage: 8 MG
     Route: 048
     Dates: start: 20111017
  6. SPIRIVA [Suspect]
     Dosage: 5 MCG
     Route: 055
     Dates: start: 20111017

REACTIONS (2)
  - EMBOLISM [None]
  - ATRIAL FIBRILLATION [None]
